FAERS Safety Report 9182902 (Version 1)
Quarter: 2013Q1

REPORT INFORMATION
  Report Type: Spontaneous
  Country: US (occurrence: US)
  Receive Date: 20130322
  Receipt Date: 20130322
  Transmission Date: 20140127
  Serious: Yes (Other)
  Sender: FDA-Public Use
  Company Number: US-BRISTOL-MYERS SQUIBB COMPANY-16413221

PATIENT
  Age: 6 Decade
  Sex: Male

DRUGS (1)
  1. ERBITUX [Suspect]
     Indication: COLON CANCER
     Dosage: 1ST-15-FEB-2012, 2ND-22-FEB-2012 AND 3RD-29-FEB-2012
     Dates: start: 20120215

REACTIONS (1)
  - Meningitis aseptic [Recovered/Resolved]
